FAERS Safety Report 13866947 (Version 1)
Quarter: 2017Q3

REPORT INFORMATION
  Report Type: Spontaneous
  Country: PT (occurrence: PT)
  Receive Date: 20170814
  Receipt Date: 20170814
  Transmission Date: 20171127
  Serious: Yes (Other)
  Sender: FDA-Public Use
  Company Number: PT-TEVA-796508ISR

PATIENT
  Sex: Female

DRUGS (1)
  1. COPAXONE [Suspect]
     Active Substance: GLATIRAMER ACETATE
     Indication: MULTIPLE SCLEROSIS
     Route: 058

REACTIONS (5)
  - Hypoaesthesia [Recovered/Resolved]
  - Tachycardia [Recovered/Resolved]
  - Face oedema [Recovered/Resolved]
  - Dysaesthesia [Recovered/Resolved]
  - Erythema [Recovered/Resolved]
